FAERS Safety Report 16898978 (Version 4)
Quarter: 2019Q4

REPORT INFORMATION
  Report Type: Spontaneous
  Country: US (occurrence: US)
  Receive Date: 20191009
  Receipt Date: 20191119
  Transmission Date: 20200122
  Serious: Yes (Hospitalization, Other)
  Sender: FDA-Public Use
  Company Number: US-PFIZER INC-2019434178

PATIENT
  Age: 79 Year
  Sex: Male

DRUGS (17)
  1. ACETAMINOPHEN;HYDROCODONE [Concomitant]
     Active Substance: ACETAMINOPHEN\HYDROCODONE
     Dosage: 1 DF, AS NEEDED [(ACETAMINOPHEN 325 MG - HYDROCODONE 5MG), 1 TAB, EVERY 6-8 HOURS]
     Route: 048
  2. PREDNISONE. [Concomitant]
     Active Substance: PREDNISONE
     Dosage: 10 MG, DAILY (WEEK 6 THEN STOP)
     Route: 048
  3. PREDNISONE. [Concomitant]
     Active Substance: PREDNISONE
     Dosage: 60 MG, DAILY (WEEK 1)
     Route: 048
  4. NITROGLYCERIN. [Concomitant]
     Active Substance: NITROGLYCERIN
     Indication: CHEST PAIN
     Dosage: 0.4 MG, AS NEEDED [EVERY 5 MIN, AS NEEDED FOR CHEST PAIN, MAX DOSE 3 IN, 1 5 MINUTES]
     Route: 060
  5. PRAVACHOL [Concomitant]
     Active Substance: PRAVASTATIN SODIUM
     Dosage: 40 MG, UNK [40 MG 1 TAB, ORAL, MONDAY, WEDNESDAY, FRIDAY]
     Route: 048
  6. PREDNISONE. [Concomitant]
     Active Substance: PREDNISONE
     Dosage: 30 MG, DAILY (WEEK 4)
     Route: 048
  7. RANITIDINE. [Concomitant]
     Active Substance: RANITIDINE
     Dosage: 150 MG, AS NEEDED (BEDTIME AS PRN)
     Route: 048
  8. METHOTREXATE SODIUM. [Suspect]
     Active Substance: METHOTREXATE SODIUM
     Indication: OSTEOARTHRITIS
     Dosage: 6 DF, WEEKLY
  9. ALBUTEROL SULFATE. [Concomitant]
     Active Substance: ALBUTEROL SULFATE
     Indication: DYSPNOEA
     Dosage: 180 UG, AS NEEDED (2 PUFFS, INHALATION, EVERY 6 HOURS AS NEEDED)
     Route: 055
  10. METOPROLOL TARTRATE. [Concomitant]
     Active Substance: METOPROLOL TARTRATE
     Dosage: 25 MG, 2X/DAY
     Route: 048
  11. METHOTREXATE SODIUM. [Suspect]
     Active Substance: METHOTREXATE SODIUM
     Indication: RHEUMATOID ARTHRITIS
     Dosage: UNK
  12. AMLODIPINE [Concomitant]
     Active Substance: AMLODIPINE BESYLATE
     Dosage: 1 DF, DAILY
     Route: 048
  13. FOLIC ACID. [Concomitant]
     Active Substance: FOLIC ACID
     Dosage: 1 MG, DAILY
     Route: 048
  14. PREDNISONE. [Concomitant]
     Active Substance: PREDNISONE
     Dosage: 50 MG, DAILY (WEEK 2)
     Route: 048
  15. PREDNISONE. [Concomitant]
     Active Substance: PREDNISONE
     Dosage: 40 MG, DAILY (WEEK 3)
     Route: 048
  16. ASPIRIN [ACETYLSALICYLIC ACID] [Concomitant]
     Active Substance: ASPIRIN
     Dosage: 81 MG, 1X/DAY [81 MG 1 TAB, ORAL, EVERY MORNING]
     Route: 048
  17. PREDNISONE. [Concomitant]
     Active Substance: PREDNISONE
     Dosage: 20 MG, DAILY (WEEK 5)
     Route: 048

REACTIONS (14)
  - Condition aggravated [Unknown]
  - Blood glucose increased [Unknown]
  - Malaise [Unknown]
  - Tenderness [Unknown]
  - Dyspnoea [Not Recovered/Not Resolved]
  - Acute respiratory failure [Unknown]
  - Interstitial lung disease [Unknown]
  - Chills [Unknown]
  - Pyrexia [Unknown]
  - Gait disturbance [Unknown]
  - Cardiomegaly [Unknown]
  - Joint swelling [Unknown]
  - Drug hypersensitivity [Unknown]
  - Joint noise [Unknown]
